FAERS Safety Report 9217566 (Version 1)
Quarter: 2013Q2

REPORT INFORMATION
  Report Type: Spontaneous
  Country: GB (occurrence: GB)
  Receive Date: 20130408
  Receipt Date: 20130408
  Transmission Date: 20140414
  Serious: Yes (Life-Threatening, Hospitalization, Other)
  Sender: FDA-Public Use
  Company Number: GB-ASTRAZENECA-2013SE21431

PATIENT
  Age: 89 Year
  Sex: Female
  Weight: 55 kg

DRUGS (3)
  1. BRILIQUE [Suspect]
     Indication: ACUTE MYOCARDIAL INFARCTION
     Route: 048
     Dates: start: 20130228, end: 20130312
  2. ASPIRIN [Concomitant]
     Indication: ANTIPLATELET THERAPY
     Route: 048
  3. PREDNISOLONE [Concomitant]
     Indication: MYALGIA
     Route: 048

REACTIONS (4)
  - Syncope [Unknown]
  - Acute left ventricular failure [Unknown]
  - Melaena [Unknown]
  - Gastrointestinal haemorrhage [Unknown]
